FAERS Safety Report 21386407 (Version 1)
Quarter: 2022Q3

REPORT INFORMATION
  Report Type: Spontaneous
  Country: JP (occurrence: JP)
  Receive Date: 20220928
  Receipt Date: 20220928
  Transmission Date: 20221027
  Serious: Yes (Death, Hospitalization)
  Sender: FDA-Public Use
  Company Number: JP-Merck Healthcare KGaA-9320847

PATIENT
  Age: 73 Year
  Sex: Male
  Weight: 69 kg

DRUGS (11)
  1. ERBITUX [Suspect]
     Active Substance: CETUXIMAB
     Indication: Tongue neoplasm malignant stage unspecified
     Dosage: 730 MG, WEEKLY (1/W)
     Route: 041
     Dates: start: 20201201, end: 20201201
  2. ERBITUX [Suspect]
     Active Substance: CETUXIMAB
     Dosage: 460 MG, WEEKLY (1/W)
     Route: 041
     Dates: start: 20201209, end: 20201209
  3. PACLITAXEL [Suspect]
     Active Substance: PACLITAXEL
     Indication: Tongue neoplasm malignant stage unspecified
     Dosage: UNK UNK, UNKNOWN
     Route: 041
     Dates: start: 20201201
  4. PACLITAXEL [Suspect]
     Active Substance: PACLITAXEL
     Dosage: 180 MG, UNKNOWN
     Route: 041
     Dates: start: 20201202
  5. CARBOPLATIN [Suspect]
     Active Substance: CARBOPLATIN
     Indication: Tongue neoplasm malignant stage unspecified
     Dosage: UNK UNK, UNKNOWN
     Route: 041
     Dates: start: 20201201
  6. CARBOPLATIN [Suspect]
     Active Substance: CARBOPLATIN
     Dosage: 210 MG, UNKNOWN
     Route: 041
     Dates: start: 20201202
  7. DEXAMETHASONE SODIUM PHOSPHATE [Concomitant]
     Active Substance: DEXAMETHASONE SODIUM PHOSPHATE
     Indication: Inflammation
     Dosage: 6.6 MG, DAILY
     Route: 041
     Dates: start: 20201201, end: 20201202
  8. POLARAMINE [Concomitant]
     Active Substance: DEXCHLORPHENIRAMINE MALEATE
     Indication: Antiallergic therapy
     Dosage: 5 MG, WEEKLY (1/W)
     Route: 041
     Dates: start: 20201201, end: 20201209
  9. GRANISETRON [Concomitant]
     Active Substance: GRANISETRON
     Indication: Nausea
     Dosage: 1 MG, UNKNOWN
     Route: 041
     Dates: start: 20201202
  10. GRANISETRON [Concomitant]
     Active Substance: GRANISETRON
     Indication: Vomiting
  11. DIPHENHYDRAMINE [Concomitant]
     Active Substance: DIPHENHYDRAMINE
     Indication: Antiallergic therapy
     Dosage: 50 MG, UNKNOWN
     Route: 048
     Dates: start: 20201202

REACTIONS (2)
  - Interstitial lung disease [Fatal]
  - Febrile neutropenia [Recovered/Resolved]

NARRATIVE: CASE EVENT DATE: 20201211
